FAERS Safety Report 9238449 (Version 1)
Quarter: 2013Q2

REPORT INFORMATION
  Report Type: Spontaneous
  Country: US (occurrence: US)
  Receive Date: 20130418
  Receipt Date: 20130418
  Transmission Date: 20140414
  Serious: Yes (Death, Hospitalization)
  Sender: FDA-Public Use
  Company Number: US-SANOFI-AVENTIS-2013SA037380

PATIENT
  Age: 50 Year
  Sex: Female

DRUGS (3)
  1. EPIRUBICIN [Suspect]
     Indication: BREAST CANCER
     Route: 065
  2. CYCLOPHOSPHAMIDE [Suspect]
     Indication: BREAST CANCER
     Route: 065
  3. TAXOTERE [Suspect]
     Indication: BREAST CANCER
     Dosage: 4 CYCLES
     Route: 065

REACTIONS (18)
  - Hepatitis B [Not Recovered/Not Resolved]
  - Acute hepatic failure [Fatal]
  - Nausea [Fatal]
  - Dehydration [Fatal]
  - Jaundice [Fatal]
  - Fatigue [Fatal]
  - Asthenia [Fatal]
  - Aspartate aminotransferase increased [Fatal]
  - Alanine aminotransferase increased [Fatal]
  - Blood bilirubin increased [Fatal]
  - Blood albumin decreased [Fatal]
  - Coagulopathy [Fatal]
  - Retroperitoneal haemorrhage [Fatal]
  - Prothrombin time prolonged [Fatal]
  - Anaemia [Fatal]
  - Hepatorenal syndrome [Fatal]
  - Coma hepatic [Fatal]
  - Mental status changes [Unknown]
